FAERS Safety Report 18426897 (Version 1)
Quarter: 2020Q4

REPORT INFORMATION
  Report Type: Spontaneous
  Country: US (occurrence: US)
  Receive Date: 20201026
  Receipt Date: 20201026
  Transmission Date: 20210114
  Serious: No
  Sender: FDA-Public Use
  Company Number: None

PATIENT
  Age: 33 Year
  Sex: Female
  Weight: 53.1 kg

DRUGS (6)
  1. OMEGA-3 GUMMIES [Concomitant]
  2. VITAMIN B COMPLEX [Concomitant]
     Active Substance: CYANOCOBALAMIN\DEXPANTHENOL\NIACINAMIDE\PYRIDOXINE HYDROCHLORIDE\RIBOFLAVIN 5^-PHOSPHATE SODIUM\THIAMINE HYDROCHLORIDE\VITAMIN B COMPLEX
  3. NEXPLANON [Concomitant]
     Active Substance: ETONOGESTREL
  4. LORATADINE. [Concomitant]
     Active Substance: LORATADINE
  5. CALCIUM GUMMIES [Concomitant]
  6. NITROFURANTOIN MONO [Suspect]
     Active Substance: NITROFURANTOIN
     Indication: URINARY TRACT INFECTION
     Dosage: ?          QUANTITY:14 CAPSULE(S);?
     Route: 048
     Dates: start: 20201024, end: 20201025

REACTIONS (5)
  - Pain [None]
  - Asthenia [None]
  - Chills [None]
  - Nausea [None]
  - Back pain [None]

NARRATIVE: CASE EVENT DATE: 20201025
